FAERS Safety Report 6768618-9 (Version None)
Quarter: 2010Q2

REPORT INFORMATION
  Report Type: 
  Country: None (occurrence: None)
  Receive Date: 20100614
  Receipt Date: 20100604
  Transmission Date: 20101027
  Serious: Yes (Hospitalization)
  Sender: FDA-Public Use
  Company Number: CO-ROCHE-707663

PATIENT
  Sex: Female

DRUGS (2)
  1. HERCEPTIN [Suspect]
     Indication: BREAST CANCER
     Dosage: FORM: INFUSION, LAST DOSE PRIOR TO SAE ON 22 APR 2010
     Route: 042
     Dates: start: 20100318, end: 20100505
  2. XELODA [Suspect]
     Indication: BREAST CANCER
     Route: 048
     Dates: start: 20100219, end: 20100505

REACTIONS (1)
  - CARDIAC TAMPONADE [None]
